FAERS Safety Report 5735967-2 (Version None)
Quarter: 2008Q2

REPORT INFORMATION
  Report Type: 
  Country: None (occurrence: None)
  Receive Date: 20080513
  Receipt Date: 20080509
  Transmission Date: 20081010
  Serious: Yes (Other)
  Sender: FDA-Public Use
  Company Number: GB-TEVA-171319ISR

PATIENT
  Age: 58 Year
  Sex: Female
  Weight: 68 kg

DRUGS (1)
  1. SIMVASTATIN [Suspect]
     Indication: HYPERCHOLESTEROLAEMIA
     Route: 048
     Dates: start: 20071031, end: 20080430

REACTIONS (1)
  - HALLUCINATION, VISUAL [None]
